FAERS Safety Report 19255736 (Version 1)
Quarter: 2021Q2

REPORT INFORMATION
  Report Type: Spontaneous
  Country: IT (occurrence: IT)
  Receive Date: 20210514
  Receipt Date: 20210514
  Transmission Date: 20210717
  Serious: No
  Sender: FDA-Public Use
  Company Number: IT-LUPIN PHARMACEUTICALS INC.-2021-06957

PATIENT
  Age: 5 Decade
  Sex: Male

DRUGS (1)
  1. DULOXETINE. [Suspect]
     Active Substance: DULOXETINE
     Indication: ANTIDEPRESSANT THERAPY
     Dosage: UNK
     Route: 065

REACTIONS (5)
  - Condition aggravated [Recovering/Resolving]
  - Drug ineffective [Unknown]
  - Irritability [Recovering/Resolving]
  - Tension [Recovering/Resolving]
  - Anxiety [Recovering/Resolving]
